FAERS Safety Report 14253755 (Version 3)
Quarter: 2018Q2

REPORT INFORMATION
  Report Type: Spontaneous
  Country: US (occurrence: US)
  Receive Date: 20171205
  Receipt Date: 20180607
  Transmission Date: 20180711
  Serious: Yes (Other)
  Sender: FDA-Public Use
  Company Number: US-DSJP-DSU-2017-143575

PATIENT

DRUGS (1)
  1. BENICAR [Suspect]
     Active Substance: OLMESARTAN MEDOXOMIL
     Indication: HYPERTENSION
     Dosage: 40 MG, QD
     Route: 048
     Dates: start: 20050401

REACTIONS (9)
  - Hiatus hernia [Unknown]
  - Inflammatory bowel disease [Not Recovered/Not Resolved]
  - Coeliac disease [Unknown]
  - Colitis ischaemic [Unknown]
  - Haemorrhoids [Not Recovered/Not Resolved]
  - Diverticulum intestinal [Not Recovered/Not Resolved]
  - Anaemia [Unknown]
  - Sprue-like enteropathy [Recovering/Resolving]
  - Proctitis [Unknown]

NARRATIVE: CASE EVENT DATE: 20050404
